FAERS Safety Report 8335333-X (Version None)
Quarter: 2012Q2

REPORT INFORMATION
  Report Type: 
  Country: None (occurrence: None)
  Receive Date: 20120503
  Receipt Date: 20120501
  Transmission Date: 20120825
  Serious: Yes (Hospitalization, Other)
  Sender: FDA-Public Use
  Company Number: US-PFIZER INC-2012019250

PATIENT
  Sex: Female
  Weight: 88 kg

DRUGS (15)
  1. LIPITOR [Suspect]
     Dosage: 40 MG, 1X/DAY
     Route: 048
     Dates: start: 20010101
  2. LIPITOR [Suspect]
     Dosage: UNK
     Route: 048
     Dates: start: 20060101
  3. ACTOS [Concomitant]
     Indication: DIABETES MELLITUS
     Dosage: 30 MG, DAILY
  4. ACETYLSALICYLIC ACID [Concomitant]
     Dosage: UNK
  5. LANTUS [Concomitant]
     Dosage: UNK
  6. PLAVIX [Concomitant]
     Dosage: UNK
  7. ACTOS [Concomitant]
     Dosage: UNK
  8. LIPITOR [Suspect]
     Dosage: UNK
     Route: 048
     Dates: start: 20050101
  9. COZAAR [Concomitant]
     Indication: HYPERTENSION
     Dosage: 100 MG, DAILY
     Route: 048
  10. COZAAR [Concomitant]
     Dosage: UNK
  11. LANTUS [Concomitant]
     Indication: DIABETES MELLITUS
     Dosage: 15 IU, DAILY
  12. COREG [Concomitant]
     Indication: HYPERTENSION
     Dosage: 12.5 MG, 3X/DAY
     Route: 048
  13. COREG [Concomitant]
     Indication: CARDIAC DISORDER
     Dosage: UNK
  14. COUMADIN [Concomitant]
     Indication: DEEP VEIN THROMBOSIS
     Dosage: 7.5 AND 10 MG ALTERNATIVELY
  15. LIPITOR [Suspect]
     Indication: HYPERLIPIDAEMIA
     Dosage: 80 MG, ONCE OHS
     Route: 048
     Dates: start: 20050101

REACTIONS (1)
  - MYOCARDIAL INFARCTION [None]
